FAERS Safety Report 9069636 (Version 1)
Quarter: 2013Q1

REPORT INFORMATION
  Report Type: Spontaneous
  Country: US (occurrence: US)
  Receive Date: 20130215
  Receipt Date: 20130215
  Transmission Date: 20140127
  Serious: Yes (Hospitalization)
  Sender: FDA-Public Use
  Company Number: US-GILEAD-2013-0069950

PATIENT
  Age: 19 Year
  Sex: Female

DRUGS (1)
  1. TENOFOVIR DISOPROXIL FUMARATE [Suspect]
     Indication: CONGENITAL HIV INFECTION

REACTIONS (4)
  - Fanconi syndrome acquired [Unknown]
  - Asthenia [None]
  - Confusional state [None]
  - Hyperkalaemia [None]
